FAERS Safety Report 9258439 (Version 1)
Quarter: 2013Q2

REPORT INFORMATION
  Report Type: Spontaneous
  Country: US (occurrence: None)
  Receive Date: 20130424
  Receipt Date: 20130424
  Transmission Date: 20140414
  Serious: No
  Sender: FDA-Public Use
  Company Number: None

PATIENT
  Age: 67 Year
  Sex: Male
  Weight: 92.9 kg

DRUGS (1)
  1. DABIGATRAN 150 MG BOEHRINGER [Suspect]
     Indication: ATRIAL FIBRILLATION
     Route: 048
     Dates: start: 20121030

REACTIONS (3)
  - Dyspepsia [None]
  - Dyspepsia [None]
  - Abnormal dreams [None]
